FAERS Safety Report 18893532 (Version 1)
Quarter: 2021Q1

REPORT INFORMATION
  Report Type: Report from Study
  Country: GB (occurrence: GB)
  Receive Date: 20210215
  Receipt Date: 20210215
  Transmission Date: 20210420
  Serious: Yes (Hospitalization)
  Sender: FDA-Public Use
  Company Number: GB-MYLANLABS-2021M1008674

PATIENT
  Sex: Female

DRUGS (2)
  1. AZTREONAM. [Concomitant]
     Active Substance: AZTREONAM
     Dosage: UNK
  2. TOBI PODHALER [Suspect]
     Active Substance: TOBRAMYCIN
     Indication: CYSTIC FIBROSIS
     Dosage: 300 MILLIGRAM, BID
     Dates: start: 2018

REACTIONS (1)
  - Hospitalisation [Unknown]
